FAERS Safety Report 17808971 (Version 2)
Quarter: 2020Q2

REPORT INFORMATION
  Report Type: Spontaneous
  Country: SK (occurrence: SK)
  Receive Date: 20200520
  Receipt Date: 20200528
  Transmission Date: 20200714
  Serious: Yes (Death, Hospitalization, Other)
  Sender: FDA-Public Use
  Company Number: NVSC2020SK138479

PATIENT
  Age: 71 Year
  Sex: Female

DRUGS (1)
  1. AMOXICILLIN SODIUM,POTASSIUM CLAVULANATE [Suspect]
     Active Substance: AMOXICILLIN\CLAVULANATE POTASSIUM
     Indication: PRODUCT USED FOR UNKNOWN INDICATION
     Dosage: UNK
     Route: 065

REACTIONS (23)
  - Hyperbilirubinaemia [Fatal]
  - Carbohydrate antigen 19-9 increased [Fatal]
  - Ascites [Fatal]
  - Lung cancer metastatic [Fatal]
  - Hepatomegaly [Fatal]
  - Transaminases increased [Fatal]
  - Jaundice [Fatal]
  - Drug-induced liver injury [Fatal]
  - Blood alkaline phosphatase increased [Fatal]
  - Blood bilirubin increased [Fatal]
  - Abdominal pain [Fatal]
  - Hepatic encephalopathy [Fatal]
  - Scleral disorder [Fatal]
  - Hepatic enzyme increased [Fatal]
  - Hepatic lesion [Fatal]
  - Dyspnoea [Fatal]
  - Asthenia [Fatal]
  - Hepatic failure [Fatal]
  - Carbohydrate antigen 125 increased [Fatal]
  - Hyperammonaemia [Fatal]
  - Acute hepatic failure [Fatal]
  - Hypertransaminasaemia [Fatal]
  - C-reactive protein increased [Fatal]
